FAERS Safety Report 7737878-X (Version None)
Quarter: 2011Q3

REPORT INFORMATION
  Report Type: 
  Country: None (occurrence: None)
  Receive Date: 20110908
  Receipt Date: 20110831
  Transmission Date: 20111222
  Serious: Yes (Hospitalization)
  Sender: FDA-Public Use
  Company Number: PHHY2011FR78075

PATIENT
  Sex: Male

DRUGS (4)
  1. VOLTAREN [Suspect]
     Indication: BACK PAIN
     Dosage: 5 TO 6 DF DAILY
     Route: 048
     Dates: start: 20110620
  2. ACETAMINOPHEN AND TRAMADOL HCL [Concomitant]
     Indication: BACK PAIN
     Dosage: 4 TO 6DF DAILY
     Route: 048
     Dates: start: 20110620
  3. OMEPRAZOLE [Concomitant]
     Dosage: 2 DF, DAILY
     Route: 048
  4. PASSIFLORA COMPOSE BOIRON [Concomitant]
     Dosage: UNK UKN, UNK

REACTIONS (8)
  - DECREASED APPETITE [None]
  - ASTHENIA [None]
  - MYALGIA [None]
  - RENAL FAILURE ACUTE [None]
  - NAUSEA [None]
  - PROTEINURIA [None]
  - WEIGHT DECREASED [None]
  - BLOOD CREATININE INCREASED [None]
